FAERS Safety Report 8294746-5 (Version None)
Quarter: 2012Q2

REPORT INFORMATION
  Report Type: 
  Country: None (occurrence: None)
  Receive Date: 20120418
  Receipt Date: 20120413
  Transmission Date: 20120825
  Serious: Yes (Hospitalization)
  Sender: FDA-Public Use
  Company Number: FR-PFIZER INC-2012046280

PATIENT
  Age: 61 Year
  Sex: Male

DRUGS (9)
  1. AZACITIDINE [Suspect]
     Indication: REFRACTORY ANAEMIA WITH AN EXCESS OF BLASTS
     Dosage: 66.37 MG
     Route: 042
     Dates: start: 20111203, end: 20111209
  2. LEVOFLOXACIN [Suspect]
     Dosage: UNK
     Dates: start: 20120104
  3. VFEND [Suspect]
     Indication: ASPERGILLOSIS
     Dosage: UNK
  4. ALFUZOSIN HCL [Concomitant]
  5. PIPERACILLIN AND TAZOBACTAM [Suspect]
     Dosage: UNK
  6. PLAVIX [Suspect]
     Dosage: UNK
  7. ZOVIRAX [Concomitant]
     Indication: HERPES VIRUS INFECTION
  8. BACTRIM [Concomitant]
     Indication: PROPHYLAXIS
     Dosage: UNK
     Dates: start: 20120109
  9. AZACITIDINE [Suspect]
     Dosage: UNK
     Route: 042
     Dates: start: 20111201, end: 20120101

REACTIONS (1)
  - PULMONARY FIBROSIS [None]
